FAERS Safety Report 18446795 (Version 10)
Quarter: 2023Q1

REPORT INFORMATION
  Report Type: Report from Study
  Country: CA (occurrence: CA)
  Receive Date: 20201030
  Receipt Date: 20230110
  Transmission Date: 20230418
  Serious: Yes (Hospitalization, Other)
  Sender: FDA-Public Use
  Company Number: CA-SHIRE-CA202017428

PATIENT
  Age: 55 Year
  Sex: Female

DRUGS (18)
  1. HUMAN IMMUNOGLOBULIN G [Suspect]
     Active Substance: HUMAN IMMUNOGLOBULIN G
     Indication: Sjogren^s syndrome
     Dosage: 8 MILLIGRAM, 1/WEEK
     Route: 058
     Dates: start: 20200522
  2. HUMAN IMMUNOGLOBULIN G [Suspect]
     Active Substance: HUMAN IMMUNOGLOBULIN G
     Dosage: 16 MILLIGRAM, 1/WEEK
     Route: 058
     Dates: start: 20200522
  3. HUMAN IMMUNOGLOBULIN G [Suspect]
     Active Substance: HUMAN IMMUNOGLOBULIN G
     Dosage: 16 GRAM, 1/WEEK
     Route: 065
     Dates: start: 20200522
  4. HUMAN IMMUNOGLOBULIN G [Suspect]
     Active Substance: HUMAN IMMUNOGLOBULIN G
     Dosage: 16 GRAM, 1/WEEK
     Route: 065
     Dates: start: 20200522
  5. HUMAN IMMUNOGLOBULIN G [Suspect]
     Active Substance: HUMAN IMMUNOGLOBULIN G
     Dosage: 8 GRAM, 1/WEEK
     Route: 065
     Dates: start: 20200522
  6. HUMAN IMMUNOGLOBULIN G [Suspect]
     Active Substance: HUMAN IMMUNOGLOBULIN G
     Dosage: 31 GRAM, 1/WEEK
     Route: 065
     Dates: start: 20200522
  7. HUMAN IMMUNOGLOBULIN G [Suspect]
     Active Substance: HUMAN IMMUNOGLOBULIN G
     Dosage: 28 GRAM, 1/WEEK
     Route: 050
     Dates: start: 20200522
  8. HUMAN IMMUNOGLOBULIN G [Suspect]
     Active Substance: HUMAN IMMUNOGLOBULIN G
     Dosage: 14 GRAM, 2/WEEK
     Route: 058
     Dates: start: 20200522
  9. HUMAN IMMUNOGLOBULIN G [Suspect]
     Active Substance: HUMAN IMMUNOGLOBULIN G
     Dosage: 8 MILLIGRAM, 1/WEEK
     Route: 058
     Dates: start: 20200615
  10. HUMAN IMMUNOGLOBULIN G [Suspect]
     Active Substance: HUMAN IMMUNOGLOBULIN G
     Dosage: 2 GRAM
     Route: 065
     Dates: start: 20200830
  11. HUMAN IMMUNOGLOBULIN G [Suspect]
     Active Substance: HUMAN IMMUNOGLOBULIN G
     Dosage: 4 GRAM
     Route: 065
     Dates: start: 20200906
  12. HUMAN IMMUNOGLOBULIN G [Suspect]
     Active Substance: HUMAN IMMUNOGLOBULIN G
     Dosage: 6 GRAM
     Route: 065
     Dates: start: 20200913
  13. PFIZER-BIONTECH COVID-19 VACCINE [Suspect]
     Active Substance: TOZINAMERAN
     Indication: COVID-19 immunisation
     Dosage: UNK
     Route: 065
     Dates: start: 20211222
  14. MAGNESIUM CITRATE [Concomitant]
     Active Substance: MAGNESIUM CITRATE
     Indication: Constipation
     Route: 065
  15. PREDNISONE [Concomitant]
     Active Substance: PREDNISONE
     Dosage: 10 MILLIGRAM
     Route: 065
  16. SEROQUEL [Concomitant]
     Active Substance: QUETIAPINE FUMARATE
     Dosage: 50 MILLIGRAM
     Route: 065
  17. CLONIDINE [Concomitant]
     Active Substance: CLONIDINE
     Dosage: 0.05 MILLIGRAM
     Route: 065
  18. DILAUDID [Concomitant]
     Active Substance: HYDROMORPHONE HYDROCHLORIDE
     Dosage: 8 MILLIGRAM
     Route: 065

REACTIONS (38)
  - Pulmonary embolism [Recovered/Resolved]
  - Stiff person syndrome [Not Recovered/Not Resolved]
  - Colitis ulcerative [Unknown]
  - Myelitis transverse [Unknown]
  - Hydronephrosis [Unknown]
  - Neuropathy peripheral [Unknown]
  - Procedural pain [Not Recovered/Not Resolved]
  - Electrocardiogram QT prolonged [Unknown]
  - Cerebellar atrophy [Not Recovered/Not Resolved]
  - Ureteral disorder [Not Recovered/Not Resolved]
  - Bowel movement irregularity [Unknown]
  - Renal disorder [Unknown]
  - Urinary tract disorder [Unknown]
  - Polyuria [Unknown]
  - Neurological symptom [Not Recovered/Not Resolved]
  - Renal colic [Unknown]
  - Condition aggravated [Unknown]
  - Musculoskeletal stiffness [Unknown]
  - Neuralgia [Unknown]
  - Constipation [Recovering/Resolving]
  - Affective disorder [Unknown]
  - Sleep disorder [Unknown]
  - Abdominal discomfort [Unknown]
  - Blood immunoglobulin G increased [Unknown]
  - Abdominal pain upper [Recovered/Resolved]
  - Pyrexia [Unknown]
  - Injection site pain [Recovering/Resolving]
  - Fatigue [Unknown]
  - Oropharyngeal pain [Unknown]
  - Influenza like illness [Recovered/Resolved]
  - Pain [Recovered/Resolved]
  - Nasal congestion [Recovered/Resolved]
  - Diarrhoea [Recovered/Resolved]
  - Chest discomfort [Recovered/Resolved]
  - Product dose omission issue [Unknown]
  - Off label use [Unknown]
  - Product quality issue [Unknown]
  - Product use in unapproved indication [Unknown]

NARRATIVE: CASE EVENT DATE: 20200522
